FAERS Safety Report 20611320 (Version 5)
Quarter: 2022Q4

REPORT INFORMATION
  Report Type: Report from Study
  Country: JP (occurrence: JP)
  Receive Date: 20220318
  Receipt Date: 20221223
  Transmission Date: 20230113
  Serious: Yes (Other)
  Sender: FDA-Public Use
  Company Number: JP-ASTELLAS-2022JP004465

PATIENT
  Age: 73 Year
  Sex: Male
  Weight: 58.8 kg

DRUGS (5)
  1. ENFORTUMAB VEDOTIN [Suspect]
     Active Substance: ENFORTUMAB VEDOTIN
     Indication: Transitional cell carcinoma
     Dosage: 60 MG (1.0 MG/KG), UNKNOWN FREQ.
     Route: 041
     Dates: start: 20220301, end: 20220308
  2. OXYCONTIN [Concomitant]
     Active Substance: OXYCODONE HYDROCHLORIDE
     Indication: Product used for unknown indication
     Dosage: 20 MG/DAY, UNKNOWN FREQ.
     Route: 048
     Dates: start: 20220308
  3. METOCLOPRAMIDE [Concomitant]
     Active Substance: METOCLOPRAMIDE
     Indication: Product used for unknown indication
     Dosage: 5 MG/DAY, UNKNOWN FREQ.
     Route: 048
     Dates: start: 20220308
  4. SENNOSIDES [Concomitant]
     Active Substance: SENNOSIDES
     Indication: Product used for unknown indication
     Dosage: 12 MG/DAY, UNKNOWN FREQ.
     Route: 048
     Dates: start: 20220308, end: 20220310
  5. LINZESS [Concomitant]
     Active Substance: LINACLOTIDE
     Indication: Product used for unknown indication
     Dosage: 0.5 MG/DAY, UNKNOWN FREQ.
     Route: 048
     Dates: start: 20220311

REACTIONS (4)
  - Delirium [Unknown]
  - Rash papular [Unknown]
  - Malaise [Unknown]
  - Nausea [Unknown]

NARRATIVE: CASE EVENT DATE: 20220310
